FAERS Safety Report 4957830-7 (Version None)
Quarter: 2006Q1

REPORT INFORMATION
  Report Type: 
  Country: None (occurrence: None)
  Receive Date: 20060330
  Receipt Date: 20060317
  Transmission Date: 20060701
  Serious: Yes (Hospitalization, Other)
  Sender: FDA-Public Use
  Company Number: PHBS2006AT04093

PATIENT
  Age: 61 Year

DRUGS (4)
  1. ZOMETA [Suspect]
     Dosage: 4 MG, QMO
     Route: 065
  2. CHEMOTHERAPEUTICS,OTHER [Concomitant]
     Dosage: UNK, UNK
     Route: 065
     Dates: end: 20050101
  3. PREDNISOLONE [Concomitant]
     Route: 065
  4. AREDIA [Suspect]
     Route: 065

REACTIONS (4)
  - BONE DISORDER [None]
  - BONE TRIMMING [None]
  - OSTEOMYELITIS [None]
  - TOOTH EXTRACTION [None]
